FAERS Safety Report 23073912 (Version 2)
Quarter: 2023Q4

REPORT INFORMATION
  Report Type: Spontaneous
  Country: BG (occurrence: BG)
  Receive Date: 20231017
  Receipt Date: 20231122
  Transmission Date: 20240110
  Serious: Yes (Hospitalization, Other)
  Sender: FDA-Public Use
  Company Number: BG-CELLTRION INC.-2023BG019792

PATIENT

DRUGS (8)
  1. ADALIMUMAB [Suspect]
     Active Substance: ADALIMUMAB\ISOPROPYL ALCOHOL
     Indication: Hidradenitis
     Dosage: 40 MG, WEEKLY/40 MILLIGRAM
     Route: 058
     Dates: start: 2023, end: 2023
  2. DIETARY SUPPLEMENT\HERBALS\MILK THISTLE [Concomitant]
     Active Substance: MILK THISTLE
     Indication: Hidradenitis
     Dosage: 90 MG, EVERY 0.5 DAY
  3. CEFTRIAXONE [Concomitant]
     Active Substance: CEFTRIAXONE\CEFTRIAXONE SODIUM
     Indication: Hidradenitis
     Dosage: 2 MG, EVERY 1 DAY
     Route: 042
  4. FLUCONAZOLE [Concomitant]
     Active Substance: FLUCONAZOLE
     Indication: Hidradenitis
     Dosage: 50 MG, EVERY 1 DAY
  5. METRONIDAZOLE [Concomitant]
     Active Substance: METRONIDAZOLE
     Indication: Hidradenitis
     Dosage: 500 MG, EVERY 0.5 DAY
     Route: 042
  6. ERTAPENEM [Concomitant]
     Active Substance: ERTAPENEM
     Indication: Hidradenitis
  7. ZINC GLUCONATE [Concomitant]
     Active Substance: ZINC GLUCONATE
     Indication: Hidradenitis
     Dosage: 15 MG, EVERY 0.33 DAY
  8. COLCHICINE [Concomitant]
     Active Substance: COLCHICINE
     Indication: Hidradenitis
     Dosage: 0.5 MG

REACTIONS (3)
  - Hidradenitis [Recovering/Resolving]
  - Disease progression [Recovering/Resolving]
  - Drug ineffective [Unknown]

NARRATIVE: CASE EVENT DATE: 20230101
